FAERS Safety Report 8270609-6 (Version None)
Quarter: 2012Q2

REPORT INFORMATION
  Report Type: 
  Country: None (occurrence: None)
  Receive Date: 20120410
  Receipt Date: 20120329
  Transmission Date: 20120825
  Serious: Yes (Other)
  Sender: FDA-Public Use
  Company Number: CN-MILLENNIUM PHARMACEUTICALS, INC.-2012-02368

PATIENT

DRUGS (4)
  1. DEXAMETHASONE [Concomitant]
     Indication: MULTIPLE MYELOMA
     Dosage: 40 MG, UNK
  2. VELCADE [Suspect]
     Indication: MULTIPLE MYELOMA
     Dosage: 1.3 MG/M2, UNK
     Route: 065
  3. THALIDOMIDE [Concomitant]
     Dosage: 100 MG, UNK
  4. DOXORUBICIN HCL [Concomitant]
     Dosage: 20 MG, UNK

REACTIONS (5)
  - NEUROPATHY PERIPHERAL [None]
  - INFECTION [None]
  - HERPES ZOSTER [None]
  - THROMBOCYTOPENIA [None]
  - BONE MARROW FAILURE [None]
